FAERS Safety Report 26168260 (Version 1)
Quarter: 2025Q4

REPORT INFORMATION
  Report Type: Report from Study
  Country: CA (occurrence: CA)
  Receive Date: 20251217
  Receipt Date: 20251217
  Transmission Date: 20260117
  Serious: Yes (Death)
  Sender: CELLTRION
  Company Number: CA-CELLTRION INC.-2025CA018012

PATIENT

DRUGS (1)
  1. INFLIXIMAB-DYYB [Suspect]
     Active Substance: INFLIXIMAB-DYYB
     Indication: Crohn^s disease
     Dosage: MAINTENANCE - 120 MG - SC (SUBCUTANEOUS) EVERY 2 WEEKS
     Route: 058
     Dates: start: 20250506, end: 20251209

REACTIONS (6)
  - Death [Fatal]
  - Drug dose omission by device [Recovered/Resolved]
  - Accidental exposure to product [Unknown]
  - Exposure via skin contact [Unknown]
  - Device difficult to use [Unknown]
  - Wrong technique in product usage process [Unknown]

NARRATIVE: CASE EVENT DATE: 20250902
